FAERS Safety Report 4706336-9 (Version None)
Quarter: 2005Q3

REPORT INFORMATION
  Report Type: 
  Country: None (occurrence: None)
  Receive Date: 20050705
  Receipt Date: 20050602
  Transmission Date: 20060218
  Serious: Yes (Hospitalization)
  Sender: FDA-Public Use
  Company Number: US-BRISTOL-MYERS SQUIBB COMPANY-12992665

PATIENT
  Age: 82 Year
  Sex: Female
  Weight: 59 kg

DRUGS (5)
  1. WARFARIN SODIUM [Suspect]
     Indication: PROPHYLAXIS
     Route: 048
     Dates: start: 20040611, end: 20050101
  2. ALLOPURINOL [Concomitant]
  3. CARDIZEM [Concomitant]
  4. NORVASC [Concomitant]
  5. DIOVAN [Concomitant]

REACTIONS (5)
  - ANAEMIA [None]
  - CEREBROVASCULAR ACCIDENT [None]
  - EPISTAXIS [None]
  - RENAL FAILURE [None]
  - RESPIRATORY FAILURE [None]
